FAERS Safety Report 9706780 (Version 2)
Quarter: 2014Q4

REPORT INFORMATION
  Report Type: Report from Study
  Country: DE (occurrence: DE)
  Receive Date: 20131125
  Receipt Date: 20141124
  Transmission Date: 20150529
  Serious: Yes (Hospitalization)
  Sender: FDA-Public Use
  Company Number: PHHO2013DE015106

PATIENT
  Age: 48 Year
  Sex: Male
  Weight: 100 kg

DRUGS (6)
  1. PREDNISONE. [Suspect]
     Active Substance: PREDNISONE
     Indication: THYMOMA
     Dosage: 20 MG
     Route: 048
     Dates: start: 20130722, end: 20131103
  2. PYRIDOSTIGMINE [Concomitant]
     Active Substance: PYRIDOSTIGMINE
     Indication: MYASTHENIA GRAVIS
     Dosage: 60 MG, 5QD
     Route: 048
     Dates: start: 20130628
  3. SOM230 [Suspect]
     Active Substance: PASIREOTIDE
     Indication: THYMOMA
     Dosage: 60 MG
     Route: 030
     Dates: start: 20130628
  4. PREDNISONE. [Suspect]
     Active Substance: PREDNISONE
     Indication: MYASTHENIA GRAVIS
     Dosage: UNK
     Route: 048
     Dates: start: 20131103
  5. PANTOPRAZOLE [Concomitant]
     Active Substance: PANTOPRAZOLE SODIUM
     Indication: PROPHYLAXIS
     Dosage: 20 MG
     Route: 048
     Dates: start: 20130722
  6. POTASSIUM [Concomitant]
     Active Substance: POTASSIUM
     Indication: MYASTHENIA GRAVIS
     Dosage: 3X1D
     Route: 048
     Dates: start: 20130618

REACTIONS (1)
  - Hyperglycaemia [Recovered/Resolved]

NARRATIVE: CASE EVENT DATE: 20131103
